FAERS Safety Report 26215289 (Version 1)
Quarter: 2025Q4

REPORT INFORMATION
  Report Type: Spontaneous
  Country: CN (occurrence: CN)
  Receive Date: 20251230
  Receipt Date: 20251230
  Transmission Date: 20260118
  Serious: Yes (Hospitalization, Other)
  Sender: JOHNSON AND JOHNSON
  Company Number: CN-BAYER-2025A169252

PATIENT
  Age: 88 Year
  Sex: Male
  Weight: 67 kg

DRUGS (1)
  1. XARELTO [Suspect]
     Active Substance: RIVAROXABAN
     Indication: Atrial fibrillation
     Dosage: 10 MG, QD
     Route: 048
     Dates: start: 20250709, end: 20251222

REACTIONS (9)
  - Gastrointestinal haemorrhage [Recovering/Resolving]
  - Melaena [Recovered/Resolved]
  - Electrocardiogram ST-T segment depression [Unknown]
  - Blood loss anaemia [Unknown]
  - Underdose [Unknown]
  - Prescribed underdose [Unknown]
  - Chest discomfort [Unknown]
  - Pallor [Unknown]
  - Conjunctival pallor [Unknown]

NARRATIVE: CASE EVENT DATE: 20250709
